FAERS Safety Report 7769420 (Version 2)
Quarter: 2013Q1

REPORT INFORMATION
  Report Type: Spontaneous
  Country: MX (occurrence: MX)
  Receive Date: 20110121
  Receipt Date: 20130213
  Transmission Date: 20140127
  Serious: Yes (Other)
  Sender: FDA-Public Use
  Company Number: PHHY2011MX02832

PATIENT
  Age: 55 Year
  Sex: Female

DRUGS (5)
  1. EXFORGE HCT [Suspect]
     Indication: HYPERTENSION
     Dosage: 1 DF, QD
     Dates: start: 20101119
  2. INSULIN [Concomitant]
     Dosage: UNK UKN, UNK
     Dates: start: 201011
  3. LIPITOR [Concomitant]
     Dosage: 10 MG, UNK
     Dates: start: 201011
  4. CALCORT [Concomitant]
     Dosage: 30 MG, UNK
  5. CAPTOPRIL [Concomitant]

REACTIONS (4)
  - VIIth nerve paralysis [Not Recovered/Not Resolved]
  - Urinary tract infection [Not Recovered/Not Resolved]
  - Blood glucose increased [Not Recovered/Not Resolved]
  - Hypertension [Not Recovered/Not Resolved]
